FAERS Safety Report 5825059-6 (Version None)
Quarter: 2008Q3

REPORT INFORMATION
  Report Type: 
  Country: None (occurrence: None)
  Receive Date: 20080729
  Receipt Date: 20080728
  Transmission Date: 20090109
  Serious: Yes (Death, Other)
  Sender: FDA-Public Use
  Company Number: FR-BRISTOL-MYERS SQUIBB COMPANY-14278816

PATIENT
  Age: 68 Year
  Sex: Female

DRUGS (5)
  1. COUMADIN [Suspect]
     Dosage: 1 DOSAGE FORM = 0.75 (UNIT NOT SPECIFIED)
     Dates: end: 20080614
  2. FLECAINIDE ACETATE [Concomitant]
  3. PERINDOPRIL ERBUMINE [Concomitant]
  4. TAHOR [Concomitant]
  5. RILMENIDINE [Concomitant]

REACTIONS (3)
  - CARDIO-RESPIRATORY ARREST [None]
  - INTERNATIONAL NORMALISED RATIO DECREASED [None]
  - SUBARACHNOID HAEMORRHAGE [None]
